FAERS Safety Report 12300945 (Version 1)
Quarter: 2016Q2

REPORT INFORMATION
  Report Type: Spontaneous
  Country: TR (occurrence: TR)
  Receive Date: 20160425
  Receipt Date: 20160425
  Transmission Date: 20160815
  Serious: Yes (Hospitalization)
  Sender: FDA-Public Use
  Company Number: TR-IMPAX LABORATORIES, INC-2016-IPXL-00456

PATIENT
  Age: 6 Year
  Sex: Female

DRUGS (2)
  1. ALBENZA [Suspect]
     Active Substance: ALBENDAZOLE
     Indication: ECHINOCOCCIASIS
     Dosage: (15 MG/KG/DAY)
     Route: 065
  2. ALBENZA [Suspect]
     Active Substance: ALBENDAZOLE
     Dosage: (15 MG/KG/DAY)
     Route: 065

REACTIONS (3)
  - Autoimmune hepatitis [Recovered/Resolved]
  - Portal tract inflammation [Unknown]
  - Hepatic necrosis [Unknown]
